FAERS Safety Report 21575306 (Version 1)
Quarter: 2022Q4

REPORT INFORMATION
  Report Type: Spontaneous
  Country: HK (occurrence: HK)
  Receive Date: 20221110
  Receipt Date: 20221110
  Transmission Date: 20230113
  Serious: Yes (Hospitalization, Other)
  Sender: FDA-Public Use
  Company Number: HK-JNJFOC-20221110846

PATIENT
  Sex: Female

DRUGS (1)
  1. IBRUTINIB [Suspect]
     Active Substance: IBRUTINIB
     Indication: Chronic lymphocytic leukaemia
     Route: 048
     Dates: start: 202105

REACTIONS (7)
  - Febrile neutropenia [Unknown]
  - Pyrexia [Unknown]
  - Contusion [Unknown]
  - Stomatitis [Unknown]
  - Mucosal inflammation [Unknown]
  - Septic shock [Unknown]
  - Pneumonia staphylococcal [Unknown]

NARRATIVE: CASE EVENT DATE: 20210701
